FAERS Safety Report 13888391 (Version 1)
Quarter: 2017Q3

REPORT INFORMATION
  Report Type: Spontaneous
  Country: US (occurrence: US)
  Receive Date: 20170822
  Receipt Date: 20170822
  Transmission Date: 20171127
  Serious: No
  Sender: FDA-Public Use
  Company Number: US-TEVA-797215ACC

PATIENT
  Sex: Female
  Weight: 52 kg

DRUGS (4)
  1. DIAMOX SEQUELS [Suspect]
     Active Substance: ACETAZOLAMIDE
     Dosage: 500 MILLIGRAM DAILY;
     Dates: start: 201703
  2. DIAMOX SEQUELS [Suspect]
     Active Substance: ACETAZOLAMIDE
     Dosage: 250 MILLIGRAM DAILY;
  3. FASLODEX [Concomitant]
     Active Substance: FULVESTRANT
     Indication: NEOPLASM MALIGNANT
     Dosage: EVERY 6-8WEEKS
     Dates: start: 201510
  4. IBRANCE [Concomitant]
     Active Substance: PALBOCICLIB
     Dosage: 125MG ONE CAPSULE BY MOUTH A DAY FOR 3 WEEKS AND OFF ONE WEEK
     Dates: start: 201510

REACTIONS (1)
  - Fatigue [Unknown]

NARRATIVE: CASE EVENT DATE: 2017
